FAERS Safety Report 19520690 (Version 1)
Quarter: 2021Q3

REPORT INFORMATION
  Report Type: Spontaneous
  Country: US (occurrence: GB)
  Receive Date: 20210712
  Receipt Date: 20210712
  Transmission Date: 20211014
  Serious: No
  Sender: FDA-Public Use
  Company Number: GB-BRECKENRIDGE PHARMACEUTICAL, INC.-2113712

PATIENT
  Age: 68 Year
  Sex: Female

DRUGS (9)
  1. LEVOTHYROXINE. [Concomitant]
     Active Substance: LEVOTHYROXINE
  2. ORUVAIL EXTENDED RELEASE [Concomitant]
     Active Substance: KETOPROFEN
  3. IRBESARTAN. [Suspect]
     Active Substance: IRBESARTAN
  4. VENLAFAXINE [Suspect]
     Active Substance: VENLAFAXINE HYDROCHLORIDE
  5. OMEPRAZOLE. [Suspect]
     Active Substance: OMEPRAZOLE
  6. ENBREL [Suspect]
     Active Substance: ETANERCEPT
     Route: 058
  7. METHOTREXATE. [Suspect]
     Active Substance: METHOTREXATE
  8. CIPROFLOXACIN HYDROCHLORIDE. [Concomitant]
     Active Substance: CIPROFLOXACIN HYDROCHLORIDE
  9. AMINOPHYLLINE. [Suspect]
     Active Substance: AMINOPHYLLINE

REACTIONS (2)
  - Lower respiratory tract infection [Unknown]
  - Pulmonary pain [None]
